FAERS Safety Report 14851626 (Version 1)
Quarter: 2018Q2

REPORT INFORMATION
  Report Type: Spontaneous
  Country: GB (occurrence: GB)
  Receive Date: 20180507
  Receipt Date: 20180507
  Transmission Date: 20180711
  Serious: Yes (Other)
  Sender: FDA-Public Use
  Company Number: GB-TAKEDA-2018TEU003023

PATIENT
  Sex: Male
  Weight: 92.53 kg

DRUGS (1)
  1. LANSOPRAZOLE. [Suspect]
     Active Substance: LANSOPRAZOLE
     Indication: DYSPEPSIA
     Dosage: 30 MG, UNK
     Route: 048

REACTIONS (9)
  - Chest pain [Recovered/Resolved]
  - Discomfort [Recovering/Resolving]
  - Hypopnoea [Recovered/Resolved]
  - Myocardial infarction [Recovered/Resolved]
  - Respiratory arrest [Recovered/Resolved]
  - Headache [Recovering/Resolving]
  - Chest discomfort [Not Recovered/Not Resolved]
  - Insomnia [Recovered/Resolved]
  - Pain [Recovering/Resolving]
